FAERS Safety Report 12013822 (Version 2)
Quarter: 2016Q1

REPORT INFORMATION
  Report Type: Spontaneous
  Country: US (occurrence: US)
  Receive Date: 20160205
  Receipt Date: 20160212
  Transmission Date: 20160526
  Serious: Yes (Death)
  Sender: FDA-Public Use
  Company Number: CHPA2016US001564

PATIENT
  Sex: Female

DRUGS (1)
  1. KERI LOTION [Suspect]
     Active Substance: LANOLIN\MINERAL OIL
     Indication: PRODUCT USED FOR UNKNOWN INDICATION
     Dosage: UNK
     Route: 061

REACTIONS (1)
  - Death [Fatal]
